FAERS Safety Report 19799307 (Version 2)
Quarter: 2022Q2

REPORT INFORMATION
  Report Type: Report from Study
  Country: CO (occurrence: CO)
  Receive Date: 20210907
  Receipt Date: 20220621
  Transmission Date: 20220720
  Serious: Yes (Other)
  Sender: FDA-Public Use
  Company Number: CO-ASTELLAS-2021US008559

PATIENT
  Age: 63 Year
  Sex: Male

DRUGS (9)
  1. TACROLIMUS [Suspect]
     Active Substance: TACROLIMUS
     Indication: Liver transplant
     Dosage: 5 MG, ONCE DAILY (EVERY 24 HOURS)
     Route: 048
     Dates: start: 20070716
  2. TACROLIMUS [Suspect]
     Active Substance: TACROLIMUS
     Route: 048
  3. TACROLIMUS [Suspect]
     Active Substance: TACROLIMUS
     Route: 048
     Dates: start: 20210323, end: 202107
  4. TACROLIMUS [Suspect]
     Active Substance: TACROLIMUS
     Route: 048
     Dates: start: 202107
  5. QUETIAPINE [Concomitant]
     Active Substance: QUETIAPINE
     Indication: Nervous system disorder
     Dosage: 1 DF, ONCE DAILY  (EVERY 24 HOURS)
     Route: 065
  6. QUETIAPINE [Concomitant]
     Active Substance: QUETIAPINE
     Indication: Depression
  7. TRAZODONE [Concomitant]
     Active Substance: TRAZODONE HYDROCHLORIDE
     Indication: Product used for unknown indication
     Dosage: 2 DF, ONCE DAILY  (EVERY 24 HOURS)
     Route: 065
  8. BUPROPION [Concomitant]
     Active Substance: BUPROPION
     Indication: Product used for unknown indication
     Dosage: 1 DF, UNKNOWN FREQ.  (EVERY 24 HOURS)
     Route: 065
  9. CYCLOSPORINE [Concomitant]
     Active Substance: CYCLOSPORINE
     Indication: Product used for unknown indication
     Dosage: UNK UNK, UNKNOWN FREQ.
     Route: 065

REACTIONS (9)
  - Secondary immunodeficiency [Recovering/Resolving]
  - Diabetes mellitus [Recovering/Resolving]
  - Bipolar disorder [Recovering/Resolving]
  - Depression [Recovering/Resolving]
  - Immunosuppressant drug level decreased [Unknown]
  - Nervous system disorder [Recovering/Resolving]
  - Immunosuppressant drug level increased [Unknown]
  - Blood creatinine increased [Unknown]
  - Renal disorder [Recovering/Resolving]

NARRATIVE: CASE EVENT DATE: 20070101
